FAERS Safety Report 8544954-0 (Version None)
Quarter: 2012Q3

REPORT INFORMATION
  Report Type: 
  Country: None (occurrence: None)
  Receive Date: 20120727
  Receipt Date: 20120719
  Transmission Date: 20120928
  Serious: Yes (Hospitalization)
  Sender: FDA-Public Use
  Company Number: US-JNJFOC-20120600221

PATIENT
  Sex: Female
  Weight: 42.55 kg

DRUGS (9)
  1. REMICADE [Suspect]
     Route: 042
     Dates: start: 20120605, end: 20120605
  2. PENTASA [Concomitant]
     Route: 048
  3. CORTIFOAM [Concomitant]
  4. ANTIBIOTICS [Concomitant]
     Indication: INFLAMMATORY BOWEL DISEASE
  5. RIFAXIMIN [Concomitant]
     Indication: INFLAMMATORY BOWEL DISEASE
  6. REMICADE [Suspect]
     Indication: COLITIS ULCERATIVE
     Route: 042
     Dates: start: 20120501
  7. REMICADE [Suspect]
     Route: 042
     Dates: start: 20120514
  8. TYLENOL [Concomitant]
  9. PREDNISONE [Concomitant]

REACTIONS (1)
  - COLITIS ULCERATIVE [None]
